FAERS Safety Report 9323849 (Version 2)
Quarter: 2013Q3

REPORT INFORMATION
  Report Type: Spontaneous
  Country: IE (occurrence: IE)
  Receive Date: 20130603
  Receipt Date: 20130716
  Transmission Date: 20140515
  Serious: Yes (Hospitalization, Other)
  Sender: FDA-Public Use
  Company Number: IE-AMGEN-IRLSP2013038629

PATIENT
  Age: 70 Year
  Sex: Female

DRUGS (6)
  1. PROLIA [Suspect]
     Indication: OSTEOPOROSIS
     Dosage: 60 MG/ML, Q6MO
     Route: 058
     Dates: start: 20130410
  2. LIPITOR [Concomitant]
     Indication: BLOOD CHOLESTEROL INCREASED
     Dosage: 20 MG, QD
     Route: 048
  3. NEXIUM                             /01479302/ [Concomitant]
     Indication: DYSPEPSIA
     Dosage: 40 MG, QD
     Route: 048
  4. IDEOS [Concomitant]
     Indication: OSTEOPOROSIS
     Dosage: UNK UNK, QD
     Route: 048
  5. TOVIAZ [Concomitant]
     Indication: HYPERTONIC BLADDER
     Dosage: 4 MG, QD
     Route: 048
  6. IXPRIM [Concomitant]
     Indication: ANALGESIC THERAPY
     Dosage: UNK UNK, QD
     Route: 048

REACTIONS (3)
  - Weight decreased [Unknown]
  - Kidney infection [Unknown]
  - Hospitalisation [Unknown]
